FAERS Safety Report 5706253-1 (Version None)
Quarter: 2008Q2

REPORT INFORMATION
  Report Type: 
  Country: None (occurrence: None)
  Receive Date: 20080415
  Receipt Date: 20080318
  Transmission Date: 20081010
  Serious: No
  Sender: FDA-Public Use
  Company Number: US-BOEHRINGER INGELHEIM GMBH, GERMANY-2008-BP-03391BP

PATIENT
  Sex: Female

DRUGS (7)
  1. COMBIVENT [Suspect]
     Indication: ASTHMA
  2. COMBIVENT [Suspect]
     Indication: SINUS DISORDER
  3. FLOVENT [Concomitant]
  4. AMLODIPINE BESYLATE [Concomitant]
  5. PRAVASTATIN [Concomitant]
  6. ALPHAGAN [Concomitant]
  7. XALATAN [Concomitant]

REACTIONS (2)
  - DYSPEPSIA [None]
  - FEELING ABNORMAL [None]
